FAERS Safety Report 6838268-4 (Version None)
Quarter: 2010Q3

REPORT INFORMATION
  Report Type: 
  Country: None (occurrence: None)
  Receive Date: 20100713
  Receipt Date: 20070607
  Transmission Date: 20110219
  Serious: Yes (Other)
  Sender: FDA-Public Use
  Company Number: US-PFIZER INC-2007048355

PATIENT
  Sex: Female
  Weight: 73.2 kg

DRUGS (2)
  1. CHANTIX [Suspect]
     Indication: EX-TOBACCO USER
     Dates: start: 20070517
  2. FLONASE [Concomitant]
     Indication: HYPERSENSITIVITY

REACTIONS (1)
  - DEPRESSION [None]
